FAERS Safety Report 7457510-2 (Version None)
Quarter: 2011Q2

REPORT INFORMATION
  Report Type: 
  Country: None (occurrence: None)
  Receive Date: 20110504
  Receipt Date: 20110421
  Transmission Date: 20111010
  Serious: No
  Sender: FDA-Public Use
  Company Number: US-B.I. PHARMACEUTICALS,INC./RIDGEFIELD-2011-BP-11523BP

PATIENT
  Age: 69 Year
  Sex: Female

DRUGS (8)
  1. PRADAXA [Suspect]
     Indication: ATRIAL FIBRILLATION
     Dosage: 300 MG
     Route: 048
     Dates: start: 20110415, end: 20110417
  2. METFORMIN HYDROCHLORIDE [Concomitant]
     Indication: DIABETES MELLITUS
     Route: 048
  3. ZOLPIDEM [Concomitant]
     Indication: SLEEP DISORDER
     Route: 048
  4. CYMBALTA [Concomitant]
     Indication: DIABETES MELLITUS
     Route: 048
  5. ATENOLOL [Concomitant]
     Indication: HYPERTENSION
     Route: 048
  6. MICARDIS [Concomitant]
     Indication: HYPERTENSION
     Route: 048
  7. PLAVIX [Concomitant]
     Indication: CORONARY ARTERIAL STENT INSERTION
     Route: 048
  8. WELCHOL [Concomitant]
     Indication: HYPERCHOLESTEROLAEMIA
     Route: 048

REACTIONS (3)
  - HEADACHE [None]
  - NAUSEA [None]
  - DIARRHOEA [None]
